FAERS Safety Report 9770621 (Version 1)
Quarter: 2013Q4

REPORT INFORMATION
  Report Type: Spontaneous
  Country: US (occurrence: US)
  Receive Date: 20131218
  Receipt Date: 20131218
  Transmission Date: 20140711
  Serious: Yes (Other)
  Sender: FDA-Public Use
  Company Number: US-GLAXOSMITHKLINE-A1053759A

PATIENT
  Age: 82 Year
  Sex: Female

DRUGS (7)
  1. ADVAIR [Suspect]
     Indication: CHRONIC OBSTRUCTIVE PULMONARY DISEASE
     Dosage: 1PUFF TWICE PER DAY
     Route: 055
     Dates: start: 2011
  2. SPIRONOLACTONE [Concomitant]
  3. FUROSEMIDE [Concomitant]
  4. LOSARTAN [Concomitant]
  5. LABETALOL [Concomitant]
  6. VITAMIN D [Concomitant]
  7. SEREVENT [Concomitant]

REACTIONS (4)
  - Choking [Recovered/Resolved]
  - Nasal dryness [Recovered/Resolved]
  - Dry throat [Recovered/Resolved]
  - Aphasia [Recovered/Resolved]
